FAERS Safety Report 25972842 (Version 1)
Quarter: 2025Q4

REPORT INFORMATION
  Report Type: Spontaneous
  Country: US (occurrence: None)
  Receive Date: 20251029
  Receipt Date: 20251029
  Transmission Date: 20260118
  Serious: No
  Sender: UCB
  Company Number: US-UCBSA-2025045392

PATIENT
  Age: 60 Year

DRUGS (3)
  1. BIMZELX [Suspect]
     Active Substance: BIMEKIZUMAB-BKZX
     Indication: Palmoplantar pustulosis
     Dosage: 320 MILLIGRAM, EV 8 WEEKS
  2. BIMZELX [Suspect]
     Active Substance: BIMEKIZUMAB-BKZX
     Indication: Psoriasis
  3. BIMZELX [Suspect]
     Active Substance: BIMEKIZUMAB-BKZX
     Indication: Off label use

REACTIONS (3)
  - Drug ineffective [Unknown]
  - Drug ineffective for unapproved indication [Unknown]
  - Off label use [Unknown]
